FAERS Safety Report 4519149-8 (Version None)
Quarter: 2004Q4

REPORT INFORMATION
  Report Type: 
  Country: None (occurrence: None)
  Receive Date: 20041206
  Receipt Date: 20041104
  Transmission Date: 20050328
  Serious: Yes (Disabling, Other)
  Sender: FDA-Public Use
  Company Number: GB-AMGEN-UK098182

PATIENT
  Sex: Male
  Weight: 56.5 kg

DRUGS (13)
  1. ARANESP [Suspect]
     Indication: ANAEMIA
     Route: 058
     Dates: start: 20020807, end: 20041020
  2. METHOTREXATE [Concomitant]
     Route: 048
     Dates: start: 20000101
  3. MYCOPHENOLATE MOFETIL [Concomitant]
  4. IMMUNE GLOBULIN INTRAVENOUS (HUMAN) [Concomitant]
  5. RED BLOOD CELLS [Concomitant]
  6. WARFARIN SODIUM [Concomitant]
     Route: 048
     Dates: start: 19980101
  7. PREDNISOLONE [Concomitant]
     Route: 048
     Dates: start: 19960101
  8. FOLIC ACID [Concomitant]
     Route: 048
     Dates: start: 20000101
  9. ALENDRONATE SODIUM [Concomitant]
     Route: 048
     Dates: start: 20010101
  10. OMEPRAZOLE [Concomitant]
     Route: 048
     Dates: start: 19950101
  11. TRAMADOL [Concomitant]
     Route: 048
     Dates: start: 20030101
  12. CALCIFEDIOL [Concomitant]
     Route: 048
     Dates: start: 20000101
  13. CALCIUM CARBONATE [Concomitant]
     Route: 048
     Dates: start: 20000101

REACTIONS (6)
  - ANISOCYTOSIS [None]
  - APLASIA PURE RED CELL [None]
  - BONE MARROW DEPRESSION [None]
  - DRUG INEFFECTIVE [None]
  - POIKILOCYTOSIS [None]
  - THROMBOCYTOPENIA [None]
